FAERS Safety Report 4850350-X (Version None)
Quarter: 2005Q4

REPORT INFORMATION
  Report Type: 
  Country: None (occurrence: None)
  Receive Date: 20051123
  Receipt Date: 20051013
  Transmission Date: 20060501
  Serious: No
  Sender: FDA-Public Use
  Company Number: 218624

PATIENT
  Sex: Male

DRUGS (1)
  1. RAPTIVA [Suspect]
     Dates: start: 20050930

REACTIONS (1)
  - HEADACHE [None]
